FAERS Safety Report 4354163-7 (Version None)
Quarter: 2004Q2

REPORT INFORMATION
  Report Type: 
  Country: None (occurrence: None)
  Receive Date: 20040503
  Receipt Date: 20040421
  Transmission Date: 20050107
  Serious: Yes (Other)
  Sender: FDA-Public Use
  Company Number: GBWYE525421JAN04

PATIENT
  Age: 25 Year
  Sex: Female

DRUGS (2)
  1. EFFEXOR XR [Suspect]
     Indication: DEPRESSION
     Dosage: IN EXCESS OF 450MG PER DAY ORAL
     Route: 048
  2. LITHIUM CARBONATE [Concomitant]

REACTIONS (4)
  - DRUG ABUSER [None]
  - EPISTAXIS [None]
  - HEADACHE [None]
  - INTENTIONAL OVERDOSE [None]
